FAERS Safety Report 10957329 (Version 2)
Quarter: 2019Q2

REPORT INFORMATION
  Report Type: Report from Study
  Country: US (occurrence: US)
  Receive Date: 20150326
  Receipt Date: 20190404
  Transmission Date: 20190711
  Serious: No
  Sender: FDA-Public Use
  Company Number: US-SA-2014SA180014

PATIENT
  Age: 51 Year
  Sex: Female

DRUGS (2)
  1. TERIFLUNOMIDE. [Suspect]
     Active Substance: TERIFLUNOMIDE
     Dosage: 14 MG, QD
     Route: 048
     Dates: start: 20170317
  2. TERIFLUNOMIDE. [Suspect]
     Active Substance: TERIFLUNOMIDE
     Indication: MULTIPLE SCLEROSIS
     Dosage: 14 MG,QD
     Route: 048
     Dates: start: 20140925

REACTIONS (2)
  - Depression [Unknown]
  - Fatigue [Unknown]
